FAERS Safety Report 5115482-X (Version None)
Quarter: 2006Q3

REPORT INFORMATION
  Report Type: 
  Country: None (occurrence: None)
  Receive Date: 20060927
  Receipt Date: 20060914
  Transmission Date: 20061208
  Serious: Yes (Hospitalization)
  Sender: FDA-Public Use
  Company Number: US-JNJFOC-20060606367

PATIENT
  Sex: Female
  Weight: 70.31 kg

DRUGS (9)
  1. REMICADE [Suspect]
     Dosage: WEEK 0;  FIRST RETREATMENT
     Route: 042
  2. REMICADE [Suspect]
     Indication: CROHN'S DISEASE
     Dosage: 4-5 INFUSIONS
     Route: 042
  3. ASACOL [Concomitant]
     Indication: CROHN'S DISEASE
  4. FOSAMAX [Concomitant]
     Indication: BONE DENSITOMETRY
  5. ULTRAM [Concomitant]
     Indication: PAIN
  6. CALCIUM GLUCONATE [Concomitant]
  7. MULTI-VITAMIN [Concomitant]
  8. DARVOCET [Concomitant]
     Indication: PAIN
  9. PREDNISONE [Concomitant]
     Indication: PREMEDICATION

REACTIONS (16)
  - ABASIA [None]
  - ARTHRALGIA [None]
  - CAESAREAN SECTION [None]
  - DRUG DEPENDENCE [None]
  - DRUG EXPOSURE DURING PREGNANCY [None]
  - DRUG INEFFECTIVE [None]
  - DYSPNOEA [None]
  - HEADACHE [None]
  - INFUSION RELATED REACTION [None]
  - PAIN IN EXTREMITY [None]
  - PAIN IN JAW [None]
  - PHARYNGOLARYNGEAL PAIN [None]
  - STREPTOCOCCAL INFECTION [None]
  - TETANUS [None]
  - TRISMUS [None]
  - URTICARIA [None]
